FAERS Safety Report 26170045 (Version 1)
Quarter: 2025Q4

REPORT INFORMATION
  Report Type: Report from Study
  Country: US (occurrence: US)
  Receive Date: 20251217
  Receipt Date: 20251217
  Transmission Date: 20260118
  Serious: No
  Sender: LUNDBECK
  Company Number: US-LUNDBECK-DKLU4022398

PATIENT
  Age: 73 Year
  Sex: Female

DRUGS (1)
  1. VYEPTI [Suspect]
     Active Substance: EPTINEZUMAB-JJMR
     Indication: Product used for unknown indication
     Dosage: 300 MILLIGRAM
     Route: 041
     Dates: start: 20251125

REACTIONS (6)
  - Poor quality sleep [Unknown]
  - Restless legs syndrome [Unknown]
  - Blood pressure increased [Unknown]
  - Heart rate increased [Unknown]
  - Sneezing [Unknown]
  - Lacrimation increased [Unknown]

NARRATIVE: CASE EVENT DATE: 20251125
